FAERS Safety Report 25368489 (Version 1)
Quarter: 2025Q2

REPORT INFORMATION
  Report Type: Report from Study
  Country: US (occurrence: US)
  Receive Date: 20250528
  Receipt Date: 20250528
  Transmission Date: 20250717
  Serious: Yes (Other)
  Sender: ALNYLAM PHARMACEUTICALS
  Company Number: US-ALNYLAM PHARMACEUTICALS, INC.-ALN-2025-003403

PATIENT

DRUGS (3)
  1. AMVUTTRA [Suspect]
     Active Substance: VUTRISIRAN
     Indication: Hereditary neuropathic amyloidosis
     Route: 065
     Dates: start: 20220831, end: 20220831
  2. DIETARY SUPPLEMENT [Concomitant]
     Active Substance: DIETARY SUPPLEMENT
     Indication: Product used for unknown indication
     Dosage: UNK, QD (6 BOOST DRINKS)
     Route: 065
  3. DIETARY SUPPLEMENT [Concomitant]
     Active Substance: DIETARY SUPPLEMENT
     Dosage: UNK, QD (1 BOOST DRINK)
     Route: 065

REACTIONS (25)
  - Glaucoma [Unknown]
  - Blindness [Unknown]
  - Macular degeneration [Unknown]
  - Neuropathy peripheral [Unknown]
  - Investigation abnormal [Unknown]
  - Cataract operation [Unknown]
  - Incontinence [Unknown]
  - Constipation [Unknown]
  - Dehydration [Unknown]
  - Catatonia [Unknown]
  - Gastrointestinal tube insertion [Unknown]
  - Pain in extremity [Unknown]
  - Peripheral swelling [Unknown]
  - Skin disorder [Unknown]
  - General physical health deterioration [Unknown]
  - Urinary tract infection [Unknown]
  - Decubitus ulcer [Unknown]
  - Hyperhidrosis [Unknown]
  - Temperature regulation disorder [Unknown]
  - Carpal tunnel syndrome [Unknown]
  - Dizziness [Unknown]
  - Disorientation [Unknown]
  - Antidepressant therapy [Unknown]
  - Catheter placement [Unknown]
  - Insomnia [Unknown]
